FAERS Safety Report 8857234 (Version 1)
Quarter: 2012Q4

REPORT INFORMATION
  Report Type: 
  Country: US (occurrence: US)
  Receive Date: 20121024
  Receipt Date: 20121024
  Transmission Date: 20130627
  Serious: Yes (Other)
  Sender: FDA-Public Use
  Company Number: US-BAYER-2012-109424

PATIENT
  Age: 78 Year
  Sex: Female
  Weight: 89 kg

DRUGS (3)
  1. ASPIRIN [Suspect]
     Dosage: 1 UNK, UNK
     Route: 048
     Dates: end: 20121014
  2. NORVASC [Concomitant]
  3. LISINOPRIL [Concomitant]

REACTIONS (3)
  - Tinnitus [Recovered/Resolved]
  - Deafness transitory [Recovered/Resolved]
  - Head discomfort [Recovered/Resolved]
